FAERS Safety Report 6072067-9 (Version None)
Quarter: 2009Q1

REPORT INFORMATION
  Report Type: 
  Country: None (occurrence: None)
  Receive Date: 20090205
  Receipt Date: 20090205
  Transmission Date: 20090719
  Serious: No
  Sender: FDA-Public Use
  Company Number: None

PATIENT
  Age: 13 Year
  Sex: Male
  Weight: 38.1022 kg

DRUGS (1)
  1. VYVANSE [Suspect]
     Indication: ATTENTION DEFICIT/HYPERACTIVITY DISORDER
     Dosage: 1 CAPSULE ONCE DAILY PO
     Route: 048
     Dates: start: 20081118, end: 20081219

REACTIONS (4)
  - AGGRESSION [None]
  - FIGHT IN SCHOOL [None]
  - INTENTIONAL SELF-INJURY [None]
  - SUICIDAL IDEATION [None]
